FAERS Safety Report 8984965 (Version 1)
Quarter: 2012Q4

REPORT INFORMATION
  Report Type: 
  Country: CO (occurrence: CO)
  Receive Date: 20121225
  Receipt Date: 20121225
  Transmission Date: 20130627
  Serious: Yes (Hospitalization, Other)
  Sender: FDA-Public Use
  Company Number: CO-AMGEN-COLSP2012082346

PATIENT
  Age: 64 Year
  Sex: Female

DRUGS (4)
  1. ENBREL [Suspect]
     Indication: RHEUMATOID ARTHRITIS
     Dosage: 50 mg, 2x/week
     Route: 058
     Dates: start: 2009, end: 201204
  2. METHOTREXATE [Concomitant]
     Indication: RHEUMATOID ARTHRITIS
     Dosage: 1 tablet, 2x/week
     Route: 048
     Dates: start: 2006, end: 201204
  3. PREDNISOLON                        /00016201/ [Concomitant]
     Indication: RHEUMATOID ARTHRITIS
     Dosage: 5 mg, alternate day
     Route: 048
     Dates: start: 2006
  4. MELOXICAM [Concomitant]
     Indication: ARTHRALGIA
     Dosage: 20 mg, 1x/day
     Route: 048
     Dates: start: 2012

REACTIONS (3)
  - Osteoarthritis [Not Recovered/Not Resolved]
  - Arthritis [Not Recovered/Not Resolved]
  - Post procedural infection [Not Recovered/Not Resolved]
